FAERS Safety Report 7202655-5 (Version None)
Quarter: 2010Q4

REPORT INFORMATION
  Report Type: 
  Country: None (occurrence: None)
  Receive Date: 20101229
  Receipt Date: 20101218
  Transmission Date: 20110411
  Serious: Yes (Hospitalization, Other)
  Sender: FDA-Public Use
  Company Number: US-ACTELION-A-NJ2010-42056

PATIENT

DRUGS (5)
  1. BOSENTAN TABLET 125 MG US [Suspect]
     Indication: PULMONARY ARTERIAL HYPERTENSION
     Dosage: 125 MG, BID
     Route: 048
     Dates: start: 20080202
  2. BOSENTAN TABLET 125 MG US [Suspect]
     Dosage: 62.5 MG, BID
     Route: 048
     Dates: start: 20070815, end: 20080201
  3. SYMBICORT [Suspect]
     Dosage: UNK
     Dates: start: 20100928
  4. COUMADIN [Concomitant]
  5. PREDNISONE [Concomitant]
     Dosage: UNK
     Dates: start: 20070825

REACTIONS (3)
  - CARDIAC ABLATION [None]
  - PALPITATIONS [None]
  - SUPRAVENTRICULAR TACHYCARDIA [None]
